FAERS Safety Report 6314408-0 (Version None)
Quarter: 2009Q3

REPORT INFORMATION
  Report Type: 
  Country: None (occurrence: None)
  Receive Date: 20090819
  Receipt Date: 20090805
  Transmission Date: 20100115
  Serious: Yes (Death)
  Sender: FDA-Public Use
  Company Number: BR-ROCHE-646057

PATIENT
  Age: 31 Year
  Sex: Male
  Weight: 90 kg

DRUGS (1)
  1. TAMIFLU [Suspect]
     Indication: INFLUENZA
     Dosage: FREQUENCY: 2 CAPSULE/DAY
     Route: 048
     Dates: start: 20090715, end: 20090720

REACTIONS (3)
  - ACUTE RESPIRATORY DISTRESS SYNDROME [None]
  - PNEUMONIA [None]
  - SEPTIC SHOCK [None]
